FAERS Safety Report 20876732 (Version 1)
Quarter: 2022Q2

REPORT INFORMATION
  Report Type: Report from Study
  Country: PL (occurrence: PL)
  Receive Date: 20220526
  Receipt Date: 20220526
  Transmission Date: 20220721
  Serious: Yes (Hospitalization)
  Sender: FDA-Public Use
  Company Number: PL-TG THERAPEUTICS INC.-TGT002601

PATIENT

DRUGS (9)
  1. UBLITUXIMAB [Suspect]
     Active Substance: UBLITUXIMAB
     Indication: Chronic lymphocytic leukaemia
     Dosage: 900 MILLIGRAM Q 12 WEEKS
     Route: 042
     Dates: start: 20170718, end: 20220516
  2. UMBRALISIB [Suspect]
     Active Substance: UMBRALISIB
     Indication: Chronic lymphocytic leukaemia
     Dosage: 400 MILLIGRAM, QD
     Route: 048
     Dates: start: 20170718, end: 20220221
  3. LEVOTHYROXINE SODIUM [Concomitant]
     Active Substance: LEVOTHYROXINE SODIUM
     Indication: Hypothyroidism
     Dosage: 25 MICROGRAM, QD
     Route: 048
     Dates: start: 2017
  4. INDAPAMIDE [Concomitant]
     Active Substance: INDAPAMIDE
     Indication: Hypertension
     Dosage: 1.5 MILLIGRAM, QD
     Route: 048
     Dates: start: 2009
  5. BISOPROLOL FUMARATE [Concomitant]
     Active Substance: BISOPROLOL FUMARATE
     Indication: Arrhythmia
     Dosage: 5 MILLIGRAM, QD
     Route: 048
     Dates: start: 2014
  6. BISOPROLOL FUMARATE [Concomitant]
     Active Substance: BISOPROLOL FUMARATE
     Indication: Hypertension
  7. METFORMIN HYDROCHLORIDE [Concomitant]
     Active Substance: METFORMIN HYDROCHLORIDE
     Indication: Diabetes mellitus
     Dosage: 500 MILLIGRAM, QD
     Route: 048
     Dates: start: 2017
  8. POTASSIUM BICARBONATE\POTASSIUM CITRATE [Concomitant]
     Active Substance: POTASSIUM BICARBONATE\POTASSIUM CITRATE
     Indication: Prophylaxis
     Dosage: 782 MILLIGRAM, QD
     Route: 048
     Dates: start: 202202
  9. PRAZOL [OMEPRAZOLE] [Concomitant]
     Indication: Gastritis
     Dosage: 20 MILLIGRAM, QD
     Route: 048
     Dates: start: 2007

REACTIONS (1)
  - Cytomegalovirus infection reactivation [Unknown]

NARRATIVE: CASE EVENT DATE: 20220221
